FAERS Safety Report 8331365-6 (Version None)
Quarter: 2012Q2

REPORT INFORMATION
  Report Type: 
  Country: None (occurrence: None)
  Receive Date: 20120502
  Receipt Date: 20120420
  Transmission Date: 20120825
  Serious: Yes (Hospitalization, Other)
  Sender: FDA-Public Use
  Company Number: JP-ROCHE-1047166

PATIENT
  Sex: Male
  Weight: 48 kg

DRUGS (8)
  1. MUCOSTA [Concomitant]
     Route: 048
     Dates: end: 20111101
  2. GOODMIN [Concomitant]
     Route: 048
     Dates: end: 20111101
  3. AVASTIN [Suspect]
     Indication: LUNG ADENOCARCINOMA
     Route: 041
     Dates: start: 20110720, end: 20120221
  4. PACLITAXEL [Concomitant]
     Indication: LUNG ADENOCARCINOMA
     Dosage: DOSAGE IS UNCERTAIN.
     Route: 041
     Dates: start: 20110720, end: 20111004
  5. ESTAZOLAM [Concomitant]
     Route: 048
     Dates: end: 20111101
  6. CARBOPLATIN [Concomitant]
     Indication: LUNG ADENOCARCINOMA
     Dosage: DOSAGE IS UNCERTAIN.
     Route: 041
     Dates: start: 20110720, end: 20111004
  7. DIOVAN [Concomitant]
     Route: 048
     Dates: end: 20111101
  8. MAGMITT [Concomitant]
     Route: 048
     Dates: end: 20111101

REACTIONS (3)
  - SUPRAVENTRICULAR TACHYCARDIA [None]
  - PNEUMONIA [None]
  - PERICARDIAL EFFUSION [None]
